FAERS Safety Report 5012192-4 (Version None)
Quarter: 2006Q2

REPORT INFORMATION
  Report Type: 
  Country: None (occurrence: None)
  Receive Date: 20060524
  Receipt Date: 20060512
  Transmission Date: 20061013
  Serious: Yes (Other)
  Sender: FDA-Public Use
  Company Number: 2006030402

PATIENT
  Age: 62 Year
  Sex: Male

DRUGS (1)
  1. BEXTRA [Suspect]
     Indication: TENDONITIS
     Dosage: UNKNOWN (1 IN 1 D), ORAL
     Route: 048
     Dates: start: 20020710

REACTIONS (3)
  - CELLULITIS [None]
  - HYPERTENSION [None]
  - STEVENS-JOHNSON SYNDROME [None]
